FAERS Safety Report 11261317 (Version 2)
Quarter: 2015Q3

REPORT INFORMATION
  Report Type: Spontaneous
  Country: IT (occurrence: IT)
  Receive Date: 20150710
  Receipt Date: 20150716
  Transmission Date: 20151125
  Serious: Yes (Death, Hospitalization, Other)
  Sender: FDA-Public Use
  Company Number: IT-GILEAD-2015-0162859

PATIENT
  Age: 71 Year
  Sex: Male

DRUGS (3)
  1. SOVALDI [Suspect]
     Active Substance: SOFOSBUVIR
     Indication: HEPATITIS C
     Dosage: 400 MG, QD
     Route: 048
     Dates: start: 20150328, end: 20150705
  2. CARVEDIOL [Concomitant]
     Active Substance: CARVEDILOL
  3. RIBAVIRIN. [Suspect]
     Active Substance: RIBAVIRIN
     Indication: HEPATITIS C
     Dosage: 600 MG, QD
     Route: 048
     Dates: start: 20150328, end: 20150705

REACTIONS (6)
  - Fatigue [Fatal]
  - Diarrhoea [Fatal]
  - Intestinal infarction [Fatal]
  - Confusional state [Fatal]
  - Abdominal pain [Fatal]
  - Hyperpyrexia [Fatal]

NARRATIVE: CASE EVENT DATE: 20150705
